FAERS Safety Report 9205321 (Version 2)
Quarter: 2013Q2

REPORT INFORMATION
  Report Type: Spontaneous
  Country: US (occurrence: US)
  Receive Date: 20130402
  Receipt Date: 20130524
  Transmission Date: 20140414
  Serious: No
  Sender: FDA-Public Use
  Company Number: US-009507513-1303USA013269

PATIENT
  Age: 8 Year
  Sex: Male
  Weight: 41.27 kg

DRUGS (4)
  1. DULERA [Suspect]
     Indication: ASTHMA
     Dosage: 2 DF, BID (TOTAL DALIY DOSE REPORTED AS 800)
     Route: 055
     Dates: start: 20111024, end: 20130423
  2. ORAPRED [Concomitant]
     Indication: ASTHMA
     Dosage: 2 TEASPOONSFUL DAILY FOR 5 DAYS
  3. XOPENEX [Concomitant]
     Indication: ASTHMA
     Dosage: UNK
     Route: 055
     Dates: start: 20111024
  4. ADVAIR [Concomitant]
     Dosage: ADVAIR 115
     Dates: start: 201211

REACTIONS (4)
  - Endocrine disorder [Unknown]
  - Growth retardation [Unknown]
  - Drug administered to patient of inappropriate age [Unknown]
  - Off label use [Unknown]
